FAERS Safety Report 6183115-X (Version None)
Quarter: 2009Q2

REPORT INFORMATION
  Report Type: 
  Country: None (occurrence: None)
  Receive Date: 20090507
  Receipt Date: 20090427
  Transmission Date: 20091009
  Serious: Yes (Other)
  Sender: FDA-Public Use
  Company Number: PHEH2007US09930

PATIENT
  Sex: Male

DRUGS (3)
  1. AREDIA [Suspect]
     Indication: MULTIPLE MYELOMA
     Dosage: 90MG
     Dates: start: 20020902
  2. ZOMETA [Suspect]
     Indication: MULTIPLE MYELOMA
     Dosage: 4MG
  3. DECADRON                                /CAN/ [Concomitant]

REACTIONS (15)
  - ANAEMIA [None]
  - ANXIETY [None]
  - ARTHRITIS [None]
  - BONE DISORDER [None]
  - COMPRESSION FRACTURE [None]
  - DEFORMITY [None]
  - EMOTIONAL DISTRESS [None]
  - HYPOPHAGIA [None]
  - INFECTION [None]
  - OSTEONECROSIS [None]
  - OSTEOPOROSIS [None]
  - PAIN [None]
  - PAIN IN JAW [None]
  - PNEUMONIA [None]
  - RESPIRATORY FAILURE [None]
